FAERS Safety Report 20617191 (Version 1)
Quarter: 2022Q1

REPORT INFORMATION
  Report Type: Spontaneous
  Country: US (occurrence: None)
  Receive Date: 20220318
  Receipt Date: 20220318
  Transmission Date: 20220423
  Serious: Yes (Hospitalization, Disabling)
  Sender: FDA-Public Use
  Company Number: None

PATIENT
  Age: 66 Year
  Sex: Female
  Weight: 112.5 kg

DRUGS (13)
  1. PROLIA [Suspect]
     Active Substance: DENOSUMAB
     Indication: Osteoporosis
     Dosage: OTHER FREQUENCY : EVERY SIX MONTHS;?OTHER ROUTE : ADMINISTERED AS ARM INJECTION BY NURSE;?
     Route: 050
     Dates: start: 20220126, end: 20220126
  2. ALLOPURINOL [Concomitant]
     Active Substance: ALLOPURINOL
  3. AMLODIPINE BESYLATE [Concomitant]
     Active Substance: AMLODIPINE BESYLATE
  4. LIPITOR [Concomitant]
  5. TORSEMIDE [Concomitant]
     Active Substance: TORSEMIDE
  6. HYDRALAZINE [Concomitant]
     Active Substance: HYDRALAZINE HYDROCHLORIDE
  7. NOVOLOG [Concomitant]
     Active Substance: INSULIN ASPART
  8. TRESIBA [Concomitant]
     Active Substance: INSULIN DEGLUDEC
  9. TYLENOL EXTRA STRENGTH [Concomitant]
     Active Substance: ACETAMINOPHEN
  10. One a Day Women^s 50+ vitamins [Concomitant]
  11. Ca supplement [Concomitant]
  12. VITAMIN D3 SUPPLEMENT [Concomitant]
  13. FISH OIL [Concomitant]
     Active Substance: FISH OIL

REACTIONS (9)
  - Fatigue [None]
  - Back pain [None]
  - Chills [None]
  - Pyrexia [None]
  - Dyspnoea [None]
  - Myalgia [None]
  - Fluid retention [None]
  - Renal disorder [None]
  - Contraindicated product prescribed [None]

NARRATIVE: CASE EVENT DATE: 20220126
